FAERS Safety Report 25929343 (Version 1)
Quarter: 2025Q4

REPORT INFORMATION
  Report Type: Spontaneous
  Country: EU (occurrence: EU)
  Receive Date: 20251016
  Receipt Date: 20251016
  Transmission Date: 20260118
  Serious: Yes (Hospitalization, Other)
  Sender: AUROBINDO
  Company Number: EU-AFSSAPS-PV2025000748

PATIENT
  Age: 3 Month
  Sex: Male
  Weight: 4.5 kg

DRUGS (2)
  1. MEROPENEM [Suspect]
     Active Substance: MEROPENEM
     Indication: Pseudomonas infection
     Dosage: UNK
     Route: 042
     Dates: start: 20250911, end: 20250919
  2. CIPROFLOXACIN [Suspect]
     Active Substance: CIPROFLOXACIN
     Indication: Pseudomonas infection
     Dosage: 90 MILLIGRAM, TWO TIMES A DAY
     Route: 042
     Dates: start: 20250911, end: 20250913

REACTIONS (2)
  - Jaundice cholestatic [Recovering/Resolving]
  - Hepatic cytolysis [Recovering/Resolving]

NARRATIVE: CASE EVENT DATE: 20250913
